FAERS Safety Report 13189180 (Version 1)
Quarter: 2017Q1

REPORT INFORMATION
  Report Type: Spontaneous
  Country: US (occurrence: US)
  Receive Date: 20170206
  Receipt Date: 20170206
  Transmission Date: 20170428
  Serious: Yes (Hospitalization)
  Sender: FDA-Public Use
  Company Number: US-009507513-1702USA000305

PATIENT
  Sex: Female
  Weight: 67.12 kg

DRUGS (1)
  1. IMPLANON [Suspect]
     Active Substance: ETONOGESTREL
     Indication: CONTRACEPTION
     Dosage: 1 DF, EVERY 3 YEARS
     Route: 059
     Dates: start: 201209

REACTIONS (8)
  - Speech disorder [Unknown]
  - Depression [Unknown]
  - Incorrect drug administration duration [Unknown]
  - Psychotic disorder [Unknown]
  - Weight increased [Unknown]
  - Hallucination, auditory [Unknown]
  - Paranoia [Unknown]
  - Pain [Unknown]

NARRATIVE: CASE EVENT DATE: 2013
